FAERS Safety Report 5203542-4 (Version None)
Quarter: 2007Q1

REPORT INFORMATION
  Report Type: 
  Country: None (occurrence: None)
  Receive Date: 20070105
  Receipt Date: 20061226
  Transmission Date: 20070707
  Serious: Yes (Life-Threatening, Hospitalization)
  Sender: FDA-Public Use
  Company Number: 2006SP008425

PATIENT
  Age: 30 Year
  Sex: Female

DRUGS (3)
  1. INTRON A [Suspect]
     Indication: HEPATITIS C
     Dosage: 6 MIU;QD;IM;6 MIU;QD;IM;6 MIU;TIW;IM
     Route: 030
     Dates: start: 20061113, end: 20061118
  2. INTRON A [Suspect]
     Indication: HEPATITIS C
     Dosage: 6 MIU;QD;IM;6 MIU;QD;IM;6 MIU;TIW;IM
     Route: 030
     Dates: start: 20061120, end: 20061124
  3. INTRON A [Suspect]
     Indication: HEPATITIS C
     Dosage: 6 MIU;QD;IM;6 MIU;QD;IM;6 MIU;TIW;IM
     Route: 030
     Dates: start: 20061125, end: 20061206

REACTIONS (5)
  - ACUTE RESPIRATORY DISTRESS SYNDROME [None]
  - BACK PAIN [None]
  - DISSEMINATED INTRAVASCULAR COAGULATION [None]
  - PNEUMONIA BACTERIAL [None]
  - WHITE BLOOD CELL COUNT DECREASED [None]
